FAERS Safety Report 11934870 (Version 1)
Quarter: 2016Q1

REPORT INFORMATION
  Report Type: Spontaneous
  Country: US (occurrence: None)
  Receive Date: 20160120
  Receipt Date: 20160120
  Transmission Date: 20160526
  Serious: Yes (Other)
  Sender: FDA-Public Use
  Company Number: None

PATIENT
  Age: 67 Year
  Sex: Male
  Weight: 79.83 kg

DRUGS (31)
  1. LEXISCAN [Suspect]
     Active Substance: REGADENOSON
     Indication: CARDIAC STRESS TEST
     Dates: start: 20151229, end: 20151229
  2. CPAP [Concomitant]
     Active Substance: DEVICE
  3. MELATONIN [Concomitant]
     Active Substance: MELATONIN
  4. LIFE EXTENSION MAGNESIUM L-THREONATE [Concomitant]
  5. GLUCOSAMINE-CHONDROITIN-MSM [Concomitant]
  6. COFFEE [Concomitant]
     Active Substance: ARABICA COFFEE BEAN\COFFEE BEAN
  7. SPICY ROIBOS TEA [Concomitant]
  8. VITAMIN D3 [Concomitant]
     Active Substance: CHOLECALCIFEROL
  9. FLONASE [Concomitant]
     Active Substance: FLUTICASONE PROPIONATE
  10. PROSTATE FORMULA (REAL HEALTH) [Concomitant]
  11. LEVITRA [Concomitant]
     Active Substance: VARDENAFIL HYDROCHLORIDE TRIHYDRATE
  12. OMEPRAZOLE. [Concomitant]
     Active Substance: OMEPRAZOLE
  13. LIFE EXTENSION BRAIN SHIELD WITH GASTRODIN [Concomitant]
  14. COQ10 [Concomitant]
     Active Substance: UBIDECARENONE
  15. FISH OIL [Concomitant]
     Active Substance: FISH OIL
  16. VIT.C [Concomitant]
  17. CARDIOLITE [Suspect]
     Active Substance: TECHNETIUM TC-99M SESTAMIBI
  18. BABY ASPIRIN [Concomitant]
     Active Substance: ASPIRIN
  19. B6 [Concomitant]
     Active Substance: PYRIDOXINE HYDROCHLORIDE
  20. MULTIMINERALS [Concomitant]
  21. NIAGEN (AKA NAD+, OR NICOTINOMIDE RIBOSIDE) [Concomitant]
  22. TEA [Concomitant]
     Active Substance: TEA LEAF
  23. EXTRA B12 [Concomitant]
  24. TURMERIC ROOT [Concomitant]
  25. LIFE EXTENSION K WITH K2 [Concomitant]
  26. RASPBERRY KETONES [Concomitant]
     Active Substance: RASPBERRY KETONE
  27. MAGOX [Concomitant]
  28. B3 [Concomitant]
  29. FOLIC [Concomitant]
  30. EARL GRAY TEA [Concomitant]
  31. PHEUMOVAX [Concomitant]

REACTIONS (9)
  - Lower respiratory tract infection [None]
  - Asthenia [None]
  - Pharyngeal disorder [None]
  - Cough [None]
  - Sneezing [None]
  - Nasopharyngitis [None]
  - Bronchial disorder [None]
  - Sleep disorder due to general medical condition, insomnia type [None]
  - Dyspnoea [None]

NARRATIVE: CASE EVENT DATE: 20151229
